FAERS Safety Report 10356538 (Version 3)
Quarter: 2014Q3

REPORT INFORMATION
  Report Type: Spontaneous
  Country: US (occurrence: US)
  Receive Date: 20140801
  Receipt Date: 20140910
  Transmission Date: 20150326
  Serious: No
  Sender: FDA-Public Use
  Company Number: US-PFIZER INC-2014196281

PATIENT
  Age: 60 Year
  Sex: Female
  Weight: 70.75 kg

DRUGS (2)
  1. GLUCOTROL [Suspect]
     Active Substance: GLIPIZIDE
     Indication: GLUCOSE TOLERANCE IMPAIRED
     Dosage: 10 MG, 2X/DAY
     Dates: start: 2012, end: 201404
  2. PROTONIX [Suspect]
     Active Substance: PANTOPRAZOLE SODIUM
     Indication: GASTROOESOPHAGEAL REFLUX DISEASE
     Dosage: 40 MG, 1X/DAY
     Route: 048
     Dates: end: 201404

REACTIONS (1)
  - Accident [Unknown]

NARRATIVE: CASE EVENT DATE: 20130601
